FAERS Safety Report 11581415 (Version 1)
Quarter: 2015Q4

REPORT INFORMATION
  Report Type: Spontaneous
  Country: US (occurrence: US)
  Receive Date: 20151001
  Receipt Date: 20151001
  Transmission Date: 20160304
  Serious: No
  Sender: FDA-Public Use
  Company Number: US-ROCHE-692490

PATIENT
  Age: 49 Year
  Sex: Male
  Weight: 65.5 kg

DRUGS (7)
  1. ALBUTEROL. [Concomitant]
     Active Substance: ALBUTEROL
     Route: 065
  2. VENTOLIN [Concomitant]
     Active Substance: ALBUTEROL SULFATE
     Route: 065
  3. COPEGUS [Suspect]
     Active Substance: RIBAVIRIN
     Indication: HEPATITIS C
     Dosage: IN DIVIDED DOSES
     Route: 048
  4. OMEPRAZOLE. [Concomitant]
     Active Substance: OMEPRAZOLE
     Route: 065
  5. PEGASYS [Suspect]
     Active Substance: PEGINTERFERON ALFA-2A
     Indication: HEPATITIS C
     Dosage: PREFILLED SYRINGE
     Route: 065
  6. PHENOBARBITAL. [Concomitant]
     Active Substance: PHENOBARBITAL
     Dosage: 3 IN THE MORNING AND 2 AT NIGHT, FOR A WEEK, HIGHER DOSE
     Route: 065
  7. PHENOBARBITAL. [Concomitant]
     Active Substance: PHENOBARBITAL
     Dosage: 2 IN THE MORNING, 2 AT NIGHT
     Route: 065

REACTIONS (14)
  - Crying [Unknown]
  - Psychiatric symptom [Not Recovered/Not Resolved]
  - Insomnia [Recovering/Resolving]
  - Vomiting [Recovered/Resolved]
  - Feeling of body temperature change [Unknown]
  - Rash [Unknown]
  - Back pain [Unknown]
  - Contusion [Unknown]
  - Headache [Recovering/Resolving]
  - Decreased appetite [Unknown]
  - Erythema [Recovering/Resolving]
  - Malaise [Unknown]
  - Irritability [Unknown]
  - Anger [Unknown]

NARRATIVE: CASE EVENT DATE: 201003
